FAERS Safety Report 19309795 (Version 1)
Quarter: 2021Q2

REPORT INFORMATION
  Report Type: Spontaneous
  Country: US (occurrence: US)
  Receive Date: 20210526
  Receipt Date: 20210526
  Transmission Date: 20210717
  Serious: Yes (Other)
  Sender: FDA-Public Use
  Company Number: US-PFIZER INC-2021589915

PATIENT
  Age: 54 Year
  Sex: Male

DRUGS (4)
  1. MEPERIDINE HCL [Suspect]
     Active Substance: MEPERIDINE HYDROCHLORIDE
     Indication: PAIN OF SKIN
     Dosage: UNK
     Route: 030
  2. CARBIDOPA AND LEVODOPA [Concomitant]
     Active Substance: CARBIDOPA\LEVODOPA
     Indication: PAIN OF SKIN
     Dosage: UNK (CUMULATIVE, 30 MG OF CARBIDOPA AND 300 MG OF LEVADOPA IN THREE DOSES)
     Route: 048
  3. METHADONE [Concomitant]
     Active Substance: METHADONE HYDROCHLORIDE
     Indication: PAIN OF SKIN
     Dosage: UNK
     Route: 048
  4. ACICLOVIR [Concomitant]
     Active Substance: ACYCLOVIR
     Indication: HERPES ZOSTER
     Dosage: 875 MG, 3X/DAY (,(200 MG/M^2) GIVEN OVER 1 HOUR AT 8? HOUR INTERVALS)
     Route: 042

REACTIONS (1)
  - Neurotoxicity [Unknown]
